FAERS Safety Report 5867460-0 (Version None)
Quarter: 2008Q3

REPORT INFORMATION
  Report Type: 
  Country: None (occurrence: None)
  Receive Date: 20080902
  Receipt Date: 20080902
  Transmission Date: 20090109
  Serious: Yes (Hospitalization)
  Sender: FDA-Public Use
  Company Number: PHEH1996US10615

PATIENT
  Sex: Male
  Weight: 85.2 kg

DRUGS (6)
  1. NEORAL [Suspect]
     Route: 048
     Dates: start: 19950219
  2. PREDNISONE TAB [Concomitant]
     Dosage: UNSPECIFIED
     Route: 065
  3. PEPCID [Concomitant]
     Dosage: UNSPECIFIED
     Route: 065
  4. LASIX [Concomitant]
     Dosage: UNSPECIFIED
     Route: 065
  5. ACTIGALL [Concomitant]
     Dosage: UNSPECIFIED
     Route: 065
  6. VANCOMYCIN HYDROCHLORIDE [Concomitant]
     Dosage: UNSPECIFIED
     Route: 065

REACTIONS (4)
  - BUNDLE BRANCH BLOCK RIGHT [None]
  - PLEURAL EFFUSION [None]
  - PULMONARY OEDEMA [None]
  - SEPSIS [None]
